FAERS Safety Report 21376807 (Version 10)
Quarter: 2022Q4

REPORT INFORMATION
  Report Type: Report from Study
  Country: ES (occurrence: None)
  Receive Date: 20220926
  Receipt Date: 20221222
  Transmission Date: 20230113
  Serious: Yes (Hospitalization)
  Sender: FDA-Public Use
  Company Number: ES-Eisai Medical Research-EC-2022-124447

PATIENT
  Age: 67 Year
  Sex: Female
  Weight: 52.5 kg

DRUGS (15)
  1. LENVATINIB [Suspect]
     Active Substance: LENVATINIB
     Indication: Squamous cell carcinoma of head and neck
     Dosage: STARTING DOSE 20 MG, FLUCTUATED DOSE
     Route: 048
     Dates: start: 20220512, end: 20220802
  2. PEMBROLIZUMAB [Suspect]
     Active Substance: PEMBROLIZUMAB
     Indication: Squamous cell carcinoma of head and neck
     Route: 041
     Dates: start: 20220512, end: 20220713
  3. PEMBROLIZUMAB [Suspect]
     Active Substance: PEMBROLIZUMAB
     Route: 041
     Dates: start: 20220803
  4. FOLIC ACID [Concomitant]
     Active Substance: FOLIC ACID
     Dates: start: 20220426
  5. OMEPRAZOLE [Concomitant]
     Active Substance: OMEPRAZOLE
     Dates: start: 20220426
  6. ALOCLAIR [HYALURONATE SODIUM;POVIDONE] [Concomitant]
     Dates: start: 20220426
  7. ACETAMINOPHEN [Concomitant]
     Active Substance: ACETAMINOPHEN
     Dates: start: 20220426
  8. DIPYRONE [Concomitant]
     Active Substance: DIPYRONE
     Dates: start: 20220426
  9. ATERINA [Concomitant]
     Dates: start: 20220426
  10. LIDOCAINE [Concomitant]
     Active Substance: LIDOCAINE
     Dates: start: 20220426
  11. AMLODIPINE [Concomitant]
     Active Substance: AMLODIPINE BESYLATE
     Dates: start: 20220601, end: 20220916
  12. ENALAPRIL [Concomitant]
     Active Substance: ENALAPRIL
     Dates: start: 20220601, end: 20220916
  13. PREGABALIN [Concomitant]
     Active Substance: PREGABALIN
     Dates: start: 20220713, end: 20220916
  14. LEVOTHYROXINE SODIUM [Concomitant]
     Active Substance: LEVOTHYROXINE SODIUM
     Dates: start: 20220713, end: 20220823
  15. FENTANYL [Concomitant]
     Active Substance: FENTANYL
     Dates: start: 20220713, end: 20221005

REACTIONS (1)
  - Asthenia [Not Recovered/Not Resolved]

NARRATIVE: CASE EVENT DATE: 20220727
